FAERS Safety Report 25380743 (Version 2)
Quarter: 2025Q2

REPORT INFORMATION
  Report Type: Spontaneous
  Country: JP (occurrence: JP)
  Receive Date: 20250530
  Receipt Date: 20250619
  Transmission Date: 20250716
  Serious: Yes (Death, Other)
  Sender: Phathom Pharmaceuticals
  Company Number: JP-PHATHOM PHARMACEUTICALS INC.-2025PHT01277

PATIENT
  Age: 78 Year
  Sex: Male

DRUGS (9)
  1. VONOPRAZAN FUMARATE [Suspect]
     Active Substance: VONOPRAZAN FUMARATE
     Indication: Product used for unknown indication
     Route: 065
  2. REXULTI [Suspect]
     Active Substance: BREXPIPRAZOLE
     Indication: Dementia Alzheimer^s type
     Route: 048
     Dates: start: 20250128, end: 20250213
  3. REXULTI [Suspect]
     Active Substance: BREXPIPRAZOLE
     Indication: Vascular dementia
     Route: 048
     Dates: start: 20250214
  4. IRON [Concomitant]
     Active Substance: IRON
  5. ALLOPURINOL [Concomitant]
     Active Substance: ALLOPURINOL
  6. XARELTO [Concomitant]
     Active Substance: RIVAROXABAN
  7. AMLODIPINE [Concomitant]
     Active Substance: AMLODIPINE BESYLATE
  8. CARBOCYSTEINE [Concomitant]
     Active Substance: CARBOCYSTEINE
  9. LOXOPROFEN SODIUM [Concomitant]
     Active Substance: LOXOPROFEN SODIUM

REACTIONS (2)
  - Death [Fatal]
  - Flank pain [Unknown]

NARRATIVE: CASE EVENT DATE: 20250201
